FAERS Safety Report 8452250-5 (Version None)
Quarter: 2012Q2

REPORT INFORMATION
  Report Type: 
  Country: None (occurrence: None)
  Receive Date: 20120620
  Receipt Date: 20120430
  Transmission Date: 20120825
  Serious: No
  Sender: FDA-Public Use
  Company Number: US-VERTEX PHARMACEUTICALS INC.-AE-2012-004833

PATIENT
  Sex: Male
  Weight: 88.53 kg

DRUGS (4)
  1. RIBAVIRIN [Concomitant]
     Indication: HEPATITIS C
     Route: 048
     Dates: start: 20120330
  2. PEGASYS PROCLICK [Concomitant]
     Indication: HEPATITIS C
     Route: 058
     Dates: start: 20120330
  3. PERCOCET [Concomitant]
  4. INCIVEK [Suspect]
     Indication: HEPATITIS C
     Route: 048
     Dates: start: 20120330

REACTIONS (2)
  - PRURITUS [None]
  - CHILLS [None]
